FAERS Safety Report 21925277 (Version 1)
Quarter: 2023Q1

REPORT INFORMATION
  Report Type: Spontaneous
  Country: US (occurrence: None)
  Receive Date: 20230127
  Receipt Date: 20230127
  Transmission Date: 20230418
  Serious: Yes (Other)
  Sender: FDA-Public Use
  Company Number: None

PATIENT
  Age: 60 Year
  Sex: Female

DRUGS (1)
  1. PRALUENT [Suspect]
     Active Substance: ALIROCUMAB
     Indication: Hyperlipidaemia
     Dosage: FREQUENCY : EVERY OTHER WEEK;?
     Route: 058
     Dates: start: 20220701, end: 20221014

REACTIONS (5)
  - Skin tightness [None]
  - Pain in extremity [None]
  - Arthralgia [None]
  - Arthralgia [None]
  - Discomfort [None]

NARRATIVE: CASE EVENT DATE: 20220801
